FAERS Safety Report 7767385 (Version 2)
Quarter: 2013Q4

REPORT INFORMATION
  Report Type: Spontaneous
  Country: US (occurrence: US)
  Receive Date: 20110120
  Receipt Date: 20131211
  Transmission Date: 20140711
  Serious: Yes (Other)
  Sender: FDA-Public Use
  Company Number: US-BAYER-2011-006231

PATIENT
  Age: 28 Year
  Sex: Female

DRUGS (3)
  1. YAZ [Suspect]
     Indication: PRODUCT USED FOR UNKNOWN INDICATION
     Dosage: UNK
     Dates: start: 200804, end: 201009
  2. YASMIN [Suspect]
     Dosage: UNK
     Dates: start: 200804, end: 201009
  3. OCELLA [Suspect]
     Indication: PRODUCT USED FOR UNKNOWN INDICATION
     Dosage: UNK
     Dates: start: 200804, end: 201009

REACTIONS (5)
  - Cholecystectomy [None]
  - Cholecystitis chronic [None]
  - Pain [None]
  - Emotional distress [None]
  - Anxiety [None]
